FAERS Safety Report 14973979 (Version 1)
Quarter: 2018Q2

REPORT INFORMATION
  Report Type: Spontaneous
  Country: US (occurrence: US)
  Receive Date: 20180604
  Receipt Date: 20180604
  Transmission Date: 20180711
  Serious: Yes (Other)
  Sender: FDA-Public Use
  Company Number: None

PATIENT

DRUGS (1)
  1. OXYTOCIN 30UNITS/500 IN NORMAL SALINE [Suspect]
     Active Substance: OXYTOCIN
     Indication: POSTPARTUM HAEMORRHAGE
     Dosage: ?          OTHER FREQUENCY:IV INFUSION;?
     Route: 041

REACTIONS (3)
  - Haemodynamic instability [None]
  - Drug ineffective [None]
  - Postpartum haemorrhage [None]

NARRATIVE: CASE EVENT DATE: 20180531
